FAERS Safety Report 12650816 (Version 1)
Quarter: 2016Q3

REPORT INFORMATION
  Report Type: Spontaneous
  Country: US (occurrence: None)
  Receive Date: 20160812
  Receipt Date: 20160812
  Transmission Date: 20161109
  Serious: No
  Sender: FDA-Public Use
  Company Number: None

PATIENT
  Age: 42 Year
  Sex: Female
  Weight: 83.92 kg

DRUGS (3)
  1. MONTELUKAST 10 MG TABLETS, 10 MG [Suspect]
     Active Substance: MONTELUKAST SODIUM
     Indication: MULTIPLE ALLERGIES
     Route: 048
     Dates: start: 20160803, end: 20160808
  2. FLONASE [Concomitant]
     Active Substance: FLUTICASONE PROPIONATE
  3. CLARITIN [Concomitant]
     Active Substance: LORATADINE

REACTIONS (4)
  - Depression [None]
  - Therapy cessation [None]
  - Emotional disorder [None]
  - Agitation [None]

NARRATIVE: CASE EVENT DATE: 20160810
